FAERS Safety Report 6383129-0 (Version None)
Quarter: 2009Q3

REPORT INFORMATION
  Report Type: 
  Country: None (occurrence: None)
  Receive Date: 20090928
  Receipt Date: 20090914
  Transmission Date: 20100115
  Serious: Yes (Hospitalization)
  Sender: FDA-Public Use
  Company Number: 1-19932591

PATIENT
  Age: 58 Year
  Sex: Male

DRUGS (6)
  1. FENTANYL TRANSDERMAL SYSTEM [Suspect]
     Dosage: 300 MCG (TOTAL), INTRAVENOUS
     Route: 042
  2. CARBIDOPA-LEVODOPA [Concomitant]
  3. ENTACAPONE [Concomitant]
  4. ROPINIROLE [Concomitant]
  5. AMANTADINE HCL [Concomitant]
  6. TRIHEXYPHENIDYL HCL [Concomitant]

REACTIONS (4)
  - BRADYKINESIA [None]
  - DYSPHONIA [None]
  - INCISION SITE PAIN [None]
  - MUSCLE RIGIDITY [None]
